FAERS Safety Report 6674479-9 (Version None)
Quarter: 2010Q2

REPORT INFORMATION
  Report Type: 
  Country: None (occurrence: None)
  Receive Date: 20100409
  Receipt Date: 20100406
  Transmission Date: 20101027
  Serious: Yes (Death, Hospitalization, Other)
  Sender: FDA-Public Use
  Company Number: PHEH2010US02969

PATIENT
  Sex: Male
  Weight: 67.574 kg

DRUGS (1)
  1. EXJADE [Suspect]
     Dosage: 1250 MG, QD
     Route: 048
     Dates: start: 20091111, end: 20100214

REACTIONS (9)
  - ANAL FISTULA [None]
  - DISEASE PROGRESSION [None]
  - ESCHERICHIA BACTERAEMIA [None]
  - MENTAL DISORDER [None]
  - PYREXIA [None]
  - RECTAL ABSCESS [None]
  - SEPTIC SHOCK [None]
  - SINUS TACHYCARDIA [None]
  - WHITE BLOOD CELL COUNT DECREASED [None]
